FAERS Safety Report 15975265 (Version 6)
Quarter: 2019Q4

REPORT INFORMATION
  Report Type: Spontaneous
  Country: US (occurrence: US)
  Receive Date: 20190218
  Receipt Date: 20191115
  Transmission Date: 20200122
  Serious: Yes (Other)
  Sender: FDA-Public Use
  Company Number: US-GLAXOSMITHKLINE-US2019GSK028797

PATIENT
  Sex: Male

DRUGS (1)
  1. PREVACID [Suspect]
     Active Substance: LANSOPRAZOLE
     Indication: PRODUCT USED FOR UNKNOWN INDICATION
     Dosage: UNK
     Route: 065

REACTIONS (8)
  - Renal injury [Unknown]
  - Urinary retention [Unknown]
  - Dysuria [Unknown]
  - Acute kidney injury [Unknown]
  - Calculus urinary [Unknown]
  - Haematuria [Unknown]
  - Chronic kidney disease [Unknown]
  - Renal failure [Unknown]
